FAERS Safety Report 5023109-0 (Version None)
Quarter: 2006Q2

REPORT INFORMATION
  Report Type: 
  Country: None (occurrence: None)
  Receive Date: 20060427
  Receipt Date: 20050310
  Transmission Date: 20061013
  Serious: Yes (Hospitalization)
  Sender: FDA-Public Use
  Company Number: HQWYE059111MAR05

PATIENT
  Age: 46 Year
  Sex: Female

DRUGS (6)
  1. OVRAL [Suspect]
     Indication: ORAL CONTRACEPTION
     Dosage: 1 TABLET 1X PER 1 DAY, ORAL
     Route: 048
     Dates: end: 20040501
  2. NICORETTE DS [Suspect]
     Indication: SMOKER
     Dosage: 4 MG INTERMITTENTLY, BUCCAL
     Route: 002
     Dates: start: 19860101, end: 20040501
  3. XANAX [Concomitant]
  4. LEXAPRO [Concomitant]
  5. ZYRTEC [Concomitant]
  6. DOXYCYCLINE [Concomitant]

REACTIONS (1)
  - ACUTE MYOCARDIAL INFARCTION [None]
